FAERS Safety Report 8515814-6 (Version None)
Quarter: 2012Q3

REPORT INFORMATION
  Report Type: 
  Country: None (occurrence: None)
  Receive Date: 20120717
  Receipt Date: 20120705
  Transmission Date: 20120928
  Serious: Yes (Hospitalization, Other)
  Sender: FDA-Public Use
  Company Number: GB-AMGEN-GBRCT2012033807

PATIENT
  Age: 81 Year
  Sex: Female

DRUGS (10)
  1. LIPITOR [Concomitant]
     Dosage: UNK UNK, QD
     Route: 048
     Dates: start: 20091001
  2. CLOPIDOGREL [Concomitant]
     Dosage: 25 MG, UNK
  3. DENOSUMAB [Suspect]
     Indication: OSTEOPOROSIS POSTMENOPAUSAL
     Dosage: 60 MG, Q6MO
     Route: 058
     Dates: start: 20050426, end: 20111017
  4. ALLOPURINOL [Concomitant]
     Dosage: 100 MG, QD
     Route: 048
  5. ADCAL [Concomitant]
     Dosage: UNK UNK, QD
     Route: 048
  6. ARNICA MONTANA [Concomitant]
     Dosage: 6 MG, QD
     Route: 048
     Dates: start: 20110608
  7. NICORANDIL [Concomitant]
     Dosage: 20 MG, QD
     Route: 048
  8. FUROSEMIDE [Concomitant]
     Dosage: 40 MG, UNK
     Route: 048
  9. RANITIDINE [Concomitant]
     Dosage: 150 MG, QD
     Route: 048
  10. CINNARIZINE [Concomitant]
     Route: 048

REACTIONS (1)
  - EXPOSED BONE IN JAW [None]
